FAERS Safety Report 4305385-2 (Version None)
Quarter: 2004Q1

REPORT INFORMATION
  Report Type: 
  Country: None (occurrence: None)
  Receive Date: 20040226
  Receipt Date: 20030919
  Transmission Date: 20041129
  Serious: No
  Sender: FDA-Public Use
  Company Number: US-BRISTOL-MYERS SQUIBB COMPANY-12389722

PATIENT
  Age: 27 Year
  Sex: Female

DRUGS (2)
  1. CARBOPLATIN [Suspect]
     Indication: ENDOMETRIAL CANCER
  2. TAXOL [Suspect]
     Indication: ENDOMETRIAL CANCER

REACTIONS (2)
  - PRURITUS [None]
  - RASH [None]
